APPROVED DRUG PRODUCT: BUTALBITAL AND ACETAMINOPHEN
Active Ingredient: ACETAMINOPHEN; BUTALBITAL
Strength: 325MG;50MG
Dosage Form/Route: TABLET;ORAL
Application: A203484 | Product #002 | TE Code: AA
Applicant: PHARMOBEDIENT CONSULTING LLC
Approved: Dec 4, 2015 | RLD: No | RS: No | Type: RX